FAERS Safety Report 15549188 (Version 2)
Quarter: 2019Q4

REPORT INFORMATION
  Report Type: Spontaneous
  Country: US (occurrence: US)
  Receive Date: 20181025
  Receipt Date: 20191011
  Transmission Date: 20200122
  Serious: No
  Sender: FDA-Public Use
  Company Number: US-IPSEN BIOPHARMACEUTICALS, INC.-2018-06166

PATIENT
  Age: 9 Year
  Sex: Male

DRUGS (1)
  1. TRIPTODUR [Suspect]
     Active Substance: TRIPTORELIN
     Indication: PRODUCT USED FOR UNKNOWN INDICATION
     Dosage: 22.5 MG, SINGLE
     Route: 030
     Dates: start: 20180222, end: 20180222

REACTIONS (6)
  - Acne [Unknown]
  - Aggression [Unknown]
  - Incorrect dose administered [Unknown]
  - Spontaneous penile erection [Recovered/Resolved]
  - Growth accelerated [Unknown]
  - Emotional disorder [Unknown]

NARRATIVE: CASE EVENT DATE: 201803
